FAERS Safety Report 15327331 (Version 2)
Quarter: 2018Q3

REPORT INFORMATION
  Report Type: Spontaneous
  Country: EG (occurrence: EG)
  Receive Date: 20180828
  Receipt Date: 20180831
  Transmission Date: 20181010
  Serious: Yes (Death, Other)
  Sender: FDA-Public Use
  Company Number: EG-TELIGENT, INC-IGIL20180476

PATIENT
  Age: 30 Year
  Sex: Female

DRUGS (3)
  1. UNSPECIFIED SSRIS [Concomitant]
     Indication: NERVOUS SYSTEM DISORDER
     Dosage: UNKNOWN
     Route: 065
  2. CEFTAZIDIME. [Suspect]
     Active Substance: CEFTAZIDIME
     Indication: POST PROCEDURAL COMPLICATION
     Dosage: 1 GRAM
     Route: 042
  3. CEFTAZIDIME. [Suspect]
     Active Substance: CEFTAZIDIME
     Dosage: 1 GRAM
     Route: 042

REACTIONS (5)
  - Cardiac arrest [Unknown]
  - Death [Fatal]
  - Tremor [Unknown]
  - Pyrexia [Unknown]
  - Hypotension [Unknown]
